FAERS Safety Report 7966734-7 (Version None)
Quarter: 2011Q4

REPORT INFORMATION
  Report Type: 
  Country: None (occurrence: None)
  Receive Date: 20111209
  Receipt Date: 20111205
  Transmission Date: 20120403
  Serious: No
  Sender: FDA-Public Use
  Company Number: US-BIOGENIDEC-2011BI046124

PATIENT
  Age: 35 Year
  Sex: Male

DRUGS (1)
  1. TYSABRI [Suspect]
     Indication: MULTIPLE SCLEROSIS
     Route: 042
     Dates: start: 20111128

REACTIONS (6)
  - FALL [None]
  - PAIN [None]
  - ASTHENIA [None]
  - HYPERSOMNIA [None]
  - DIARRHOEA [None]
  - FATIGUE [None]
